FAERS Safety Report 6789044-2 (Version None)
Quarter: 2010Q2

REPORT INFORMATION
  Report Type: 
  Country: None (occurrence: None)
  Receive Date: 20100623
  Receipt Date: 20080724
  Transmission Date: 20101027
  Serious: No
  Sender: FDA-Public Use
  Company Number: US-PFIZER INC-2008046057

PATIENT
  Sex: Male
  Weight: 105.69 kg

DRUGS (1)
  1. DIDREX [Suspect]
     Indication: OBESITY

REACTIONS (1)
  - DRUG SCREEN FALSE POSITIVE [None]
